FAERS Safety Report 4859898-5 (Version None)
Quarter: 2005Q4

REPORT INFORMATION
  Report Type: 
  Country: None (occurrence: None)
  Receive Date: 20051215
  Receipt Date: 20051206
  Transmission Date: 20060501
  Serious: Yes (Death)
  Sender: FDA-Public Use
  Company Number: 2005-12-0387

PATIENT
  Age: 70 Year
  Sex: Female

DRUGS (2)
  1. PROVENTIL [Suspect]
     Indication: ASTHMA
     Dosage: INHALATION
     Route: 055
     Dates: start: 19900101
  2. PROVENTIL [Suspect]
     Indication: EMPHYSEMA
     Dosage: INHALATION
     Route: 055
     Dates: start: 19900101

REACTIONS (3)
  - DRUG INEFFECTIVE [None]
  - SUFFOCATION FEELING [None]
  - UNEVALUABLE EVENT [None]
